FAERS Safety Report 5257171-7 (Version None)
Quarter: 2007Q1

REPORT INFORMATION
  Report Type: 
  Country: None (occurrence: None)
  Receive Date: 20070305
  Receipt Date: 20061016
  Transmission Date: 20070707
  Serious: Yes (Other)
  Sender: FDA-Public Use
  Company Number: 2006SP004360

PATIENT
  Age: 17 Year
  Sex: Female

DRUGS (1)
  1. CLARITYN (LORATADINE)  (LORATADINE) [Suspect]
     Indication: DRUG USE FOR UNKNOWN INDICATION

REACTIONS (3)
  - AGGRESSION [None]
  - DEPRESSION [None]
  - IRRITABILITY [None]
